FAERS Safety Report 5928254-0 (Version None)
Quarter: 2008Q4

REPORT INFORMATION
  Report Type: 
  Country: None (occurrence: None)
  Receive Date: 20081023
  Receipt Date: 20081013
  Transmission Date: 20090506
  Serious: Yes (Death, Hospitalization)
  Sender: FDA-Public Use
  Company Number: ES-ELI_LILLY_AND_COMPANY-ES200810003028

PATIENT
  Age: 83 Year
  Sex: Female

DRUGS (8)
  1. FORTEO [Suspect]
     Indication: OSTEOPOROSIS
     Dosage: 20 UG, UNKNOWN
     Route: 058
     Dates: start: 20080601
  2. DISGREN [Concomitant]
     Dosage: UNK, UNKNOWN
     Route: 065
     Dates: end: 20080929
  3. MOTIVAN [Concomitant]
     Dosage: UNK, UNKNOWN
     Route: 065
  4. OMEPRAZOLE [Concomitant]
     Dosage: UNK, UNKNOWN
     Route: 065
  5. NIMODIPINE [Concomitant]
     Dosage: UNK, UNKNOWN
     Route: 065
  6. LEVOTHROID [Concomitant]
     Dosage: UNK, UNKNOWN
     Route: 065
  7. MAGNESIUM SULFATE [Concomitant]
     Dosage: UNK, UNKNOWN
     Route: 065
  8. ANTIDEPRESSANTS [Concomitant]
     Indication: DEPRESSION
     Dosage: UNK, UNKNOWN
     Route: 065

REACTIONS (13)
  - ABDOMINAL DISCOMFORT [None]
  - DEATH [None]
  - FALL [None]
  - FEELING HOT [None]
  - HIP FRACTURE [None]
  - INFARCTION [None]
  - MULTI-ORGAN FAILURE [None]
  - PANCREATITIS [None]
  - PULMONARY OEDEMA [None]
  - RENAL FAILURE [None]
  - THIRST [None]
  - URINARY HESITATION [None]
  - WRIST FRACTURE [None]
